FAERS Safety Report 12328256 (Version 1)
Quarter: 2016Q2

REPORT INFORMATION
  Report Type: Report from Study
  Country: FR (occurrence: FR)
  Receive Date: 20160503
  Receipt Date: 20160503
  Transmission Date: 20160815
  Serious: Yes (Hospitalization)
  Sender: FDA-Public Use
  Company Number: FR-ASTELLAS-2016US016968

PATIENT
  Age: 62 Year
  Sex: Male

DRUGS (7)
  1. PROGRAF [Suspect]
     Active Substance: TACROLIMUS\TACROLIMUS ANHYDROUS
     Indication: LIVER TRANSPLANT
     Route: 065
     Dates: start: 20151019, end: 20151026
  2. EUPRESSYL                          /00631801/ [Concomitant]
     Active Substance: URAPIDIL
     Indication: HYPERTENSION
     Dosage: UNK UNK, UNKNOWN FREQ.
     Route: 065
  3. CELLCEPT [Concomitant]
     Active Substance: MYCOPHENOLATE MOFETIL\MYCOPHENOLATE MOFETIL HYDROCHLORIDE
     Indication: IMMUNOSUPPRESSANT DRUG THERAPY
     Route: 065
  4. INSULIN [Concomitant]
     Active Substance: INSULIN NOS
     Indication: HYPERGLYCAEMIA
     Dosage: UNK UNK, UNKNOWN FREQ.
     Route: 058
  5. TACROLIMUS. [Suspect]
     Active Substance: TACROLIMUS
     Indication: LIVER TRANSPLANT
     Route: 048
     Dates: start: 20151026, end: 20151230
  6. TACROLIMUS. [Suspect]
     Active Substance: TACROLIMUS
     Route: 065
     Dates: start: 20151230
  7. CORTANCYL [Concomitant]
     Active Substance: PREDNISONE
     Indication: IMMUNOSUPPRESSANT DRUG THERAPY
     Route: 065

REACTIONS (1)
  - Anastomotic stenosis [Recovered/Resolved]

NARRATIVE: CASE EVENT DATE: 20151106
